FAERS Safety Report 25736940 (Version 1)
Quarter: 2025Q3

REPORT INFORMATION
  Report Type: Spontaneous
  Country: EU (occurrence: EU)
  Receive Date: 20250828
  Receipt Date: 20250828
  Transmission Date: 20251021
  Serious: Yes (Life-Threatening, Hospitalization, Other)
  Sender: SANOFI AVENTIS
  Company Number: None

PATIENT
  Age: 78 Year
  Sex: Female
  Weight: 64 kg

DRUGS (7)
  1. KEVZARA [Suspect]
     Active Substance: SARILUMAB
     Indication: Rheumatoid arthritis
     Dosage: 200 MG, QOW
     Route: 058
     Dates: start: 20240206
  2. PREDNISONE [Suspect]
     Active Substance: PREDNISONE
     Indication: Rheumatoid arthritis
     Dosage: 4 MG, QD
     Route: 048
     Dates: start: 2001
  3. METHOTREXATE [Suspect]
     Active Substance: METHOTREXATE
     Indication: Rheumatoid arthritis
     Dosage: 20 MG, QW
     Route: 058
     Dates: start: 2001
  4. ORENCIA [Concomitant]
     Active Substance: ABATACEPT
     Dates: start: 201703, end: 201711
  5. TOCILIZUMAB [Concomitant]
     Active Substance: TOCILIZUMAB
     Dates: start: 2009, end: 2016
  6. RITUXIMAB [Concomitant]
     Active Substance: RITUXIMAB
     Dates: start: 201711, end: 202401
  7. INFLIXIMAB [Concomitant]
     Active Substance: INFLIXIMAB
     Dates: start: 201611, end: 201703

REACTIONS (3)
  - Cerebral toxoplasmosis [Recovering/Resolving]
  - Respiratory depression [Recovered/Resolved]
  - Hyponatraemia [Unknown]

NARRATIVE: CASE EVENT DATE: 20250416
